FAERS Safety Report 18142443 (Version 2)
Quarter: 2020Q3

REPORT INFORMATION
  Report Type: Report from Study
  Country: US (occurrence: US)
  Receive Date: 20200812
  Receipt Date: 20200817
  Transmission Date: 20201103
  Serious: Yes (Hospitalization)
  Sender: FDA-Public Use
  Company Number: US-BRISTOL-MYERS SQUIBB COMPANY-BMS-2020-064394

PATIENT
  Age: 41 Year
  Sex: Female
  Weight: 98.9 kg

DRUGS (2)
  1. NIVOLUMAB [Suspect]
     Active Substance: NIVOLUMAB
     Indication: ANGIOSARCOMA
     Dosage: 303 MILLIGRAM, Q3WK
     Route: 042
     Dates: start: 20200701, end: 20200722
  2. IPILIMUMAB [Suspect]
     Active Substance: IPILIMUMAB
     Indication: ANGIOSARCOMA
     Dosage: 101 MILLIGRAM, Q3WK
     Route: 042
     Dates: start: 20200701, end: 20200722

REACTIONS (1)
  - Pleural effusion [Recovering/Resolving]

NARRATIVE: CASE EVENT DATE: 20200806
